FAERS Safety Report 8282095-0 (Version None)
Quarter: 2012Q2

REPORT INFORMATION
  Report Type: 
  Country: None (occurrence: None)
  Receive Date: 20120413
  Receipt Date: 20120331
  Transmission Date: 20120825
  Serious: Yes (Other)
  Sender: FDA-Public Use
  Company Number: BR-AMGEN-BRASP2012021977

PATIENT
  Age: 45 Year
  Sex: Female
  Weight: 58 kg

DRUGS (4)
  1. PREDNISONE [Concomitant]
     Indication: RHEUMATOID ARTHRITIS
     Dosage: UNK, QD
  2. METHOTREXATE [Concomitant]
     Dosage: UNK, QWK
  3. MELOXICAM [Concomitant]
     Dosage: 15 MG, 1X/DAY
  4. ENBREL [Suspect]
     Indication: RHEUMATOID ARTHRITIS
     Dosage: 50 MG, WEEKLY
     Route: 058
     Dates: start: 20120316

REACTIONS (9)
  - WOUND [None]
  - COUGH [None]
  - PRURITUS [None]
  - SWELLING FACE [None]
  - NODULE [None]
  - OEDEMA MOUTH [None]
  - PAIN [None]
  - BLISTER [None]
  - PYREXIA [None]
